FAERS Safety Report 10602819 (Version 1)
Quarter: 2014Q4

REPORT INFORMATION
  Report Type: Spontaneous
  Country: US (occurrence: US)
  Receive Date: 20141124
  Receipt Date: 20141124
  Transmission Date: 20150529
  Serious: No
  Sender: FDA-Public Use
  Company Number: US-NOVEN-14US010367

PATIENT
  Age: 61 Year
  Sex: Female

DRUGS (2)
  1. MINIVELLE [Suspect]
     Active Substance: ESTRADIOL
     Indication: BLOOD OESTROGEN DECREASED
     Dosage: 0.1 MG, TWICE WEEKLY
     Dates: start: 201402, end: 201407
  2. MINIVELLE [Suspect]
     Active Substance: ESTRADIOL
     Dosage: .1 MG, TWICE WEEKLY
     Route: 062
     Dates: start: 201409

REACTIONS (2)
  - Product packaging quantity issue [Not Recovered/Not Resolved]
  - Rash generalised [Recovered/Resolved]

NARRATIVE: CASE EVENT DATE: 2014
